FAERS Safety Report 9252496 (Version 2)
Quarter: 2013Q2

REPORT INFORMATION
  Report Type: Report from Study
  Country: US (occurrence: US)
  Receive Date: 20130424
  Receipt Date: 20130426
  Transmission Date: 20140414
  Serious: Yes (Hospitalization)
  Sender: FDA-Public Use
  Company Number: US-ABBOTT-13P-163-1077387-00

PATIENT
  Age: 62 Year
  Sex: Female

DRUGS (1)
  1. HUMIRA [Suspect]
     Indication: COLITIS ULCERATIVE
     Dates: start: 20121123, end: 20130322

REACTIONS (6)
  - Colitis [Recovering/Resolving]
  - Gastrointestinal infection [Recovering/Resolving]
  - Chills [Unknown]
  - Pyrexia [Unknown]
  - Chills [Unknown]
  - Pelvic abscess [Recovered/Resolved]
